FAERS Safety Report 22299678 (Version 1)
Quarter: 2023Q2

REPORT INFORMATION
  Report Type: Spontaneous
  Country: US (occurrence: None)
  Receive Date: 20230508
  Receipt Date: 20230508
  Transmission Date: 20230722
  Serious: Yes (unspecified)
  Sender: FDA-Public Use
  Company Number: None

PATIENT
  Age: 70 Year
  Sex: Male
  Weight: 68.4 kg

DRUGS (8)
  1. LENACAPAVIR [Suspect]
     Active Substance: LENACAPAVIR
     Indication: HIV infection
     Dosage: OTHER FREQUENCY : EVERY 6 MONTHS;?
     Route: 058
     Dates: start: 20230406
  2. LENACAPAVIR [Suspect]
     Active Substance: LENACAPAVIR
     Indication: HIV infection
     Dosage: FREQUENCY : DAILY;?
     Route: 048
     Dates: start: 20230406
  3. BIKTARVY [Concomitant]
     Dates: start: 20230404
  4. GAMMAGARD [Concomitant]
  5. acyclovir [Concomitant]
  6. testosterone pump 1.62% [Concomitant]
  7. Quviviq [Concomitant]
  8. ALFUZOSIN [Concomitant]
     Active Substance: ALFUZOSIN

REACTIONS (4)
  - Nausea [None]
  - Dizziness [None]
  - Blood pressure decreased [None]
  - Asthenia [None]

NARRATIVE: CASE EVENT DATE: 20230406
